FAERS Safety Report 8858572 (Version 8)
Quarter: 2013Q3

REPORT INFORMATION
  Report Type: Spontaneous
  Country: US (occurrence: US)
  Receive Date: 20121024
  Receipt Date: 20130830
  Transmission Date: 20140515
  Serious: Yes (Hospitalization, Disabling, Other)
  Sender: FDA-Public Use
  Company Number: US-009507513-1205USA00714

PATIENT
  Sex: Female
  Weight: 48.53 kg

DRUGS (6)
  1. FOSAMAX [Suspect]
     Indication: OSTEOPOROSIS
     Dosage: 70 MG, UNK
     Route: 048
     Dates: start: 20040610, end: 200802
  2. FOSAMAX [Suspect]
     Indication: OSTEOPOROSIS
     Dosage: 70 MG, UNK
     Route: 048
     Dates: start: 200802, end: 201208
  3. ALENDRONATE SODIUM [Suspect]
     Dosage: 70 MG, QW
     Route: 048
     Dates: start: 20080220, end: 20090413
  4. NEXIUM [Concomitant]
     Dosage: UNK
     Dates: start: 2001
  5. CELEXA [Concomitant]
     Indication: NERVOUSNESS
     Dosage: UNK
     Dates: start: 2001
  6. NORVASC [Concomitant]
     Indication: HYPERTENSION
     Dosage: 5 MG, QD
     Route: 048

REACTIONS (48)
  - Femur fracture [Recovered/Resolved]
  - Femur fracture [Recovered/Resolved]
  - Intramedullary rod insertion [Unknown]
  - Intramedullary rod insertion [Unknown]
  - Femur fracture [Unknown]
  - Diabetic ketoacidosis [Recovered/Resolved]
  - Pneumonia aspiration [Recovered/Resolved]
  - Renal failure acute [Recovered/Resolved]
  - Respiratory failure [Recovered/Resolved]
  - Fall [Unknown]
  - Leg amputation [Unknown]
  - Lower limb fracture [Unknown]
  - Diabetes mellitus [Unknown]
  - Skin lesion [Unknown]
  - Pain [Not Recovered/Not Resolved]
  - Osteoarthritis [Unknown]
  - Knee deformity [Unknown]
  - Joint instability [Unknown]
  - Immobile [Unknown]
  - Diabetic retinopathy [Unknown]
  - Urinary retention [Unknown]
  - Osteopenia [Unknown]
  - Depression [Unknown]
  - Hypokalaemia [Recovered/Resolved]
  - Traumatic haemorrhage [Recovered/Resolved]
  - Injury [Recovered/Resolved]
  - Dehydration [Recovered/Resolved]
  - Thrombocytopenia [Unknown]
  - Haemorrhagic anaemia [Recovering/Resolving]
  - Enterococcal infection [Unknown]
  - Chondropathy [Unknown]
  - Joint effusion [Not Recovered/Not Resolved]
  - Loose body in joint [Unknown]
  - Impaired healing [Unknown]
  - Diabetic foot [Recovered/Resolved]
  - Loose body in joint [Unknown]
  - Synovitis [Not Recovered/Not Resolved]
  - Vascular calcification [Unknown]
  - Osteoarthritis [Unknown]
  - Generalised anxiety disorder [Unknown]
  - Epidural lipomatosis [Unknown]
  - Syringomyelia [Unknown]
  - Urinary retention [Unknown]
  - Bacterial test [Unknown]
  - Muscular weakness [Unknown]
  - Asthenia [Unknown]
  - Muscle spasms [Unknown]
  - Arthralgia [Unknown]
